FAERS Safety Report 17365097 (Version 1)
Quarter: 2020Q1

REPORT INFORMATION
  Report Type: Spontaneous
  Country: DE (occurrence: DE)
  Receive Date: 20200204
  Receipt Date: 20200204
  Transmission Date: 20200409
  Serious: Yes (Other)
  Sender: FDA-Public Use
  Company Number: DE-BRISTOL-MYERS SQUIBB COMPANY-BMS-2020-008250

PATIENT
  Sex: Male

DRUGS (1)
  1. ELIQUIS [Suspect]
     Active Substance: APIXABAN
     Indication: TRANSCATHETER AORTIC VALVE IMPLANTATION
     Dosage: UNAVAILABLE
     Route: 065

REACTIONS (2)
  - Intentional product use issue [Unknown]
  - Aortic valve disease [Unknown]
